FAERS Safety Report 9517519 (Version 2)
Quarter: 2013Q3

REPORT INFORMATION
  Report Type: Spontaneous
  Country: US (occurrence: US)
  Receive Date: 20130911
  Receipt Date: 20130918
  Transmission Date: 20140515
  Serious: Yes (Hospitalization, Other)
  Sender: FDA-Public Use
  Company Number: US-BAXTER-2013BAX035347

PATIENT
  Age: 56 Year
  Sex: Male

DRUGS (1)
  1. DIANEAL LOW CALCIUM [Suspect]
     Indication: PERITONEAL DIALYSIS
     Route: 033
     Dates: start: 20080707

REACTIONS (4)
  - Bloody peritoneal effluent [Unknown]
  - Haemorrhage [Unknown]
  - Peritonitis [Recovering/Resolving]
  - Diverticulitis [Not Recovered/Not Resolved]
